FAERS Safety Report 9172866 (Version 1)
Quarter: 2012Q4

REPORT INFORMATION
  Report Type: 
  Country: NP (occurrence: NP)
  Receive Date: 20120911
  Receipt Date: 20120911
  Transmission Date: 20130627
  Serious: Yes (Hospitalization)
  Sender: FDA-Public Use
  Company Number: NP-WATSON-2012-15730

PATIENT
  Age: 24 Year
  Sex: Female

DRUGS (4)
  1. PREDNISOLONE [Suspect]
     Indication: SYSTEMIC LUPUS ERYTHEMATOSUS
     Dosage: 20 mg, daily
     Route: 048
  2. AMOXICILLIN [Suspect]
     Indication: PHARYNGITIS
     Dosage: UNK
     Route: 065
  3. METHYLPREDNISOLONE [Suspect]
     Indication: SYSTEMIC LUPUS ERYTHEMATOSUS
     Dosage: 800 mg, UNK
     Route: 042
  4. CYCLOPHOSPHAMIDE [Suspect]
     Indication: SYSTEMIC LUPUS ERYTHEMATOSUS
     Route: 042

REACTIONS (8)
  - Lemierre syndrome [Recovered/Resolved]
  - Drug eruption [Recovered/Resolved]
  - Dermatitis allergic [None]
  - Incoherent [None]
  - Abnormal behaviour [None]
  - Staring [None]
  - Oropharyngeal pain [None]
  - Lung consolidation [None]
